FAERS Safety Report 9473139 (Version 1)
Quarter: 2013Q3

REPORT INFORMATION
  Report Type: Spontaneous
  Country: US (occurrence: US)
  Receive Date: 20130823
  Receipt Date: 20130823
  Transmission Date: 20140515
  Serious: No
  Sender: FDA-Public Use
  Company Number: US-BRISTOL-MYERS SQUIBB COMPANY-17476292

PATIENT
  Age: 61 Year
  Sex: Female
  Weight: 54.42 kg

DRUGS (10)
  1. SPRYCEL [Suspect]
     Indication: CHRONIC MYELOID LEUKAEMIA
     Route: 048
     Dates: start: 20130225
  2. ACTONEL [Concomitant]
  3. CITRACAL [Concomitant]
  4. FISH OIL [Concomitant]
  5. FLAXSEED OIL [Concomitant]
  6. LISINOPRIL [Concomitant]
  7. VESICARE [Concomitant]
  8. VITAMIN B12 [Concomitant]
  9. VITAMIN B6 [Concomitant]
  10. VITAMIN D [Concomitant]

REACTIONS (7)
  - Constipation [Not Recovered/Not Resolved]
  - Diarrhoea [Not Recovered/Not Resolved]
  - Fatigue [Not Recovered/Not Resolved]
  - Pruritus [Not Recovered/Not Resolved]
  - Abdominal distension [Not Recovered/Not Resolved]
  - Decreased appetite [Not Recovered/Not Resolved]
  - Alopecia [Not Recovered/Not Resolved]
